FAERS Safety Report 11632831 (Version 1)
Quarter: 2015Q4

REPORT INFORMATION
  Report Type: Spontaneous
  Country: CN (occurrence: CN)
  Receive Date: 20151015
  Receipt Date: 20151015
  Transmission Date: 20160304
  Serious: Yes (Other)
  Sender: FDA-Public Use
  Company Number: CN-GLAXOSMITHKLINE-CN2015GSK144817

PATIENT
  Age: 32 Year
  Sex: Male
  Weight: 60 kg

DRUGS (2)
  1. LAMIVUDINE. [Suspect]
     Active Substance: LAMIVUDINE
     Indication: HEPATITIS B
     Dosage: 10 MG, UNK
  2. ADEFOVIR [Suspect]
     Active Substance: ADEFOVIR
     Indication: CHRONIC HEPATITIS B
     Dosage: 10 MG, UNK
     Route: 048
     Dates: start: 20030220

REACTIONS (4)
  - Drug resistance [Unknown]
  - Renal tubular disorder [Recovered/Resolved]
  - Blood creatinine increased [Recovered/Resolved]
  - Blood phosphorus increased [Recovered/Resolved]
